FAERS Safety Report 8510809-0 (Version None)
Quarter: 2012Q3

REPORT INFORMATION
  Report Type: 
  Country: None (occurrence: None)
  Receive Date: 20120716
  Receipt Date: 20120713
  Transmission Date: 20120928
  Serious: No
  Sender: FDA-Public Use
  Company Number: US-PFIZER INC-2012169736

PATIENT
  Sex: Male
  Weight: 120 kg

DRUGS (11)
  1. SUTENT [Suspect]
     Indication: RENAL CELL CARCINOMA
     Dosage: 25 MG, 1X/DAY
     Route: 048
     Dates: start: 20120101
  2. PROZAC [Concomitant]
     Indication: CONFUSIONAL STATE
  3. SUTENT [Suspect]
     Dosage: 50 MG, 1X/DAY
     Route: 048
     Dates: start: 20120101, end: 20120701
  4. LIPITOR [Concomitant]
     Dosage: 20 MG, 1X/DAY
  5. ADDERALL 5 [Concomitant]
     Indication: THINKING ABNORMAL
     Dosage: 10 MG, AS NEEDED (ONCE OR TWO TIMES A DAY)
  6. METFORMIN [Concomitant]
     Indication: TYPE 2 DIABETES MELLITUS
     Dosage: 1000 MG, 1X/DAY
  7. PROZAC [Concomitant]
     Indication: THINKING ABNORMAL
     Dosage: 60 MG, 1X/DAY
  8. DIOVAN HCT [Concomitant]
     Indication: HYPERTENSION
     Dosage: 320/25 MG, 1X/DAY
  9. LOPRESSOR [Concomitant]
     Indication: HYPERTENSION
     Dosage: 50 MG, AS NEEDED
  10. ADDERALL 5 [Concomitant]
     Indication: CONFUSIONAL STATE
  11. XANAX [Concomitant]
     Dosage: 0.5 MG, AS NEEDED (ONCE OR TWO TIMES A DAY)

REACTIONS (14)
  - GLOSSODYNIA [None]
  - DYSPNOEA [None]
  - COUGH [None]
  - ORAL DISCOMFORT [None]
  - ASTHENIA [None]
  - ORAL PAIN [None]
  - VOMITING [None]
  - MALAISE [None]
  - TONGUE DISORDER [None]
  - EATING DISORDER [None]
  - DECREASED APPETITE [None]
  - DYSGEUSIA [None]
  - ABDOMINAL PAIN UPPER [None]
  - NAUSEA [None]
